FAERS Safety Report 5393864-9 (Version None)
Quarter: 2007Q3

REPORT INFORMATION
  Report Type: 
  Country: None (occurrence: None)
  Receive Date: 20070723
  Receipt Date: 20070720
  Transmission Date: 20080115
  Serious: Yes (Other)
  Sender: FDA-Public Use
  Company Number: B0477215A

PATIENT
  Age: 73 Year
  Sex: Male
  Weight: 45 kg

DRUGS (14)
  1. VALTREX [Suspect]
     Indication: HERPES ZOSTER
     Dosage: 500MG TWICE PER DAY
     Route: 048
     Dates: start: 20070618, end: 20070623
  2. ADALAT [Concomitant]
     Indication: HYPERTENSION
     Dosage: 20MG PER DAY
     Route: 048
  3. FUROSEMIDE [Concomitant]
     Dosage: 40MG PER DAY
     Route: 048
  4. UNKNOWN DRUG [Concomitant]
     Dosage: 3G PER DAY
     Route: 048
  5. EXCELASE [Concomitant]
     Route: 048
  6. CALTAN [Concomitant]
     Dosage: 3G PER DAY
     Route: 048
  7. GASMOTIN [Concomitant]
     Dosage: 15MG PER DAY
     Route: 048
  8. LANSOPRAZOLE [Concomitant]
     Indication: GASTRIC ULCER
     Dosage: 30MG PER DAY
     Route: 048
  9. ARGAMATE [Concomitant]
     Dosage: 75G PER DAY
     Route: 048
  10. PURSENNID [Concomitant]
     Indication: CONSTIPATION
     Route: 048
  11. ALLEGRA [Concomitant]
     Indication: PRURITUS
     Dosage: 120MG PER DAY
     Route: 048
  12. ESPO [Concomitant]
     Dosage: 3000IU PER DAY
     Route: 042
  13. PROTAMINE SULFATE [Concomitant]
     Route: 042
  14. AZUNOL [Concomitant]

REACTIONS (2)
  - HALLUCINATION [None]
  - RESTLESSNESS [None]
